FAERS Safety Report 4543865-5 (Version None)
Quarter: 2005Q1

REPORT INFORMATION
  Report Type: 
  Country: None (occurrence: None)
  Receive Date: 20050103
  Receipt Date: 20031023
  Transmission Date: 20050727
  Serious: Yes (Other)
  Sender: FDA-Public Use
  Company Number: GXKR2003FR00532

PATIENT
  Age: 27 Week
  Weight: 1 kg

DRUGS (1)
  1. IBUPROFEN [Suspect]
     Indication: PROPHYLAXIS
     Dosage: 10 MG/KG, ONCE/SINGLE, INTRAVITREOUS

REACTIONS (3)
  - HYPOXIA [None]
  - PULMONARY HYPERTENSION [None]
  - PULMONARY VASCULAR DISORDER [None]
